FAERS Safety Report 8875362 (Version 1)
Quarter: 2012Q4

REPORT INFORMATION
  Report Type: 
  Country: US (occurrence: US)
  Receive Date: 20121029
  Receipt Date: 20121029
  Transmission Date: 20130627
  Serious: Yes (Other)
  Sender: FDA-Public Use
  Company Number: US-SANOFI-AVENTIS-2012SA076257

PATIENT
  Age: 45 Year
  Sex: Female

DRUGS (1)
  1. ZOLPIDEM TARTRATE [Suspect]
     Indication: SLEEP DISORDER
     Route: 048
     Dates: end: 201208

REACTIONS (4)
  - Road traffic accident [Unknown]
  - Sleep-related eating disorder [Unknown]
  - Amnesia [Unknown]
  - Abnormal sleep-related event [Unknown]
